FAERS Safety Report 4574045-5 (Version None)
Quarter: 2005Q1

REPORT INFORMATION
  Report Type: 
  Country: None (occurrence: None)
  Receive Date: 20050204
  Receipt Date: 20050121
  Transmission Date: 20050727
  Serious: Yes (Hospitalization)
  Sender: FDA-Public Use
  Company Number: 2003142615US

PATIENT
  Age: 50 Year
  Sex: Male

DRUGS (2)
  1. CAMPTOSAR [Suspect]
     Indication: SMALL CELL LUNG CANCER STAGE UNSPECIFIED
     Dosage: (65 MG/M*2), INTRAVENOUS
     Route: 042
     Dates: start: 20021112, end: 20021217
  2. CISPLATIN [Suspect]
     Indication: SMALL CELL LUNG CANCER STAGE UNSPECIFIED
     Dosage: (25 MG/M*2), INTRAVENOUS
     Route: 042
     Dates: start: 20021112, end: 20021217

REACTIONS (11)
  - BLOOD PRESSURE DECREASED [None]
  - CACHEXIA [None]
  - DEHYDRATION [None]
  - DIARRHOEA [None]
  - HYPOXIA [None]
  - NAUSEA [None]
  - NEUTROPENIA [None]
  - PNEUMONIA [None]
  - PULMONARY EMBOLISM [None]
  - VOMITING [None]
  - WEIGHT DECREASED [None]
